FAERS Safety Report 23794059 (Version 2)
Quarter: 2024Q2

REPORT INFORMATION
  Report Type: Spontaneous
  Country: CN (occurrence: CN)
  Receive Date: 20240429
  Receipt Date: 20240430
  Transmission Date: 20240716
  Serious: Yes (Other)
  Sender: FDA-Public Use
  Company Number: CN-PFIZER INC-PV202400054668

PATIENT
  Age: 65 Year
  Sex: Female
  Weight: 59 kg

DRUGS (5)
  1. IRINOTECAN [Suspect]
     Active Substance: IRINOTECAN
     Indication: Colon cancer
     Dosage: ONCE EVERY 14 DAYS
     Route: 041
     Dates: start: 20240320, end: 20240320
  2. FLUOROURACIL [Suspect]
     Active Substance: FLUOROURACIL
     Indication: Colon cancer
     Dosage: ONCE EVERY 14 DAYS
     Route: 042
     Dates: start: 20240320, end: 20240320
  3. FLUOROURACIL [Suspect]
     Active Substance: FLUOROURACIL
     Dosage: ONCE EVERY 14 DAYS
     Dates: start: 20240320, end: 20240322
  4. AVASTIN [Suspect]
     Active Substance: BEVACIZUMAB
     Indication: Colon cancer
     Dosage: EVERY 14 DAYS
     Route: 041
     Dates: start: 20240320, end: 20240320
  5. LEUCOVORIN CALCIUM [Concomitant]
     Active Substance: LEUCOVORIN CALCIUM
     Dosage: UNK
     Dates: start: 20240320

REACTIONS (3)
  - Electrocardiogram ST segment depression [Recovering/Resolving]
  - Chest pain [Recovering/Resolving]
  - Electrocardiogram abnormal [Recovering/Resolving]

NARRATIVE: CASE EVENT DATE: 20240325
